FAERS Safety Report 21286581 (Version 1)
Quarter: 2022Q3

REPORT INFORMATION
  Report Type: Report from Study
  Country: US (occurrence: US)
  Receive Date: 20220902
  Receipt Date: 20220902
  Transmission Date: 20221027
  Serious: Yes (Other)
  Sender: FDA-Public Use
  Company Number: US-BIOVITRUM-2022US10085

PATIENT
  Sex: Female
  Weight: 57 kg

DRUGS (1)
  1. DOPTELET [Suspect]
     Active Substance: AVATROMBOPAG MALEATE
     Indication: Thrombocytopenia
     Dates: start: 20220822, end: 20220826

REACTIONS (3)
  - Pneumonia [Unknown]
  - Bronchitis [Unknown]
  - Drug ineffective [Unknown]
